FAERS Safety Report 9241616 (Version 2)
Quarter: 2013Q2

REPORT INFORMATION
  Report Type: Spontaneous
  Country: FR (occurrence: FR)
  Receive Date: 20130419
  Receipt Date: 20130506
  Transmission Date: 20140414
  Serious: No
  Sender: FDA-Public Use
  Company Number: FR-JNJFOC-20130403072

PATIENT
  Sex: Male
  Weight: 50 kg

DRUGS (1)
  1. DUROGESIC [Suspect]
     Indication: PAIN
     Route: 062

REACTIONS (3)
  - Accidental overdose [Unknown]
  - Product quality issue [Unknown]
  - Poor quality drug administered [Unknown]
